FAERS Safety Report 6679627 (Version 20)
Quarter: 2013Q3

REPORT INFORMATION
  Report Type: Spontaneous
  Country: US (occurrence: US)
  Receive Date: 20080624
  Receipt Date: 20130904
  Transmission Date: 20140515
  Serious: Yes (Hospitalization, Congenital Anomaly, Other)
  Sender: FDA-Public Use
  Company Number: US-PFIZER INC-2008049828

PATIENT
  Sex: Male
  Weight: 4.2 kg

DRUGS (28)
  1. ZOLOFT [Suspect]
     Indication: DEPRESSION
     Dosage: 50MG AND 100MG
     Route: 064
     Dates: start: 20030313
  2. ZOLOFT [Suspect]
     Dosage: UNK
     Route: 064
     Dates: start: 20030330
  3. ZOLOFT [Suspect]
     Dosage: 50 MG, UNK
     Route: 064
     Dates: start: 20031111
  4. ZOLOFT [Suspect]
     Dosage: UNK
     Route: 064
     Dates: start: 200411
  5. SERTRALINE HCL [Suspect]
     Dosage: UNK
     Route: 064
  6. PROZAC [Concomitant]
     Dosage: UNK
     Route: 064
     Dates: start: 200311, end: 200401
  7. KLONOPIN [Concomitant]
     Indication: ANXIETY
     Dosage: ALMOST EVERY NIGHT TO SLEEP
     Route: 064
  8. GLYBURIDE [Concomitant]
     Dosage: UNK
     Route: 064
  9. PRENATAL VITAMINS [Concomitant]
     Dosage: UNK
     Route: 064
  10. IRON [Concomitant]
     Dosage: UNK
     Route: 064
  11. CLONAZEPAM [Concomitant]
     Dosage: UNK
     Route: 064
  12. PAXIL [Concomitant]
     Dosage: UNK
     Route: 064
  13. FLUOXETINE [Concomitant]
     Dosage: UNK
     Route: 064
  14. WELLBUTRIN [Concomitant]
     Dosage: UNK
     Route: 064
  15. DIAZEPAM [Concomitant]
     Dosage: UNK
     Route: 064
  16. LEXAPRO [Concomitant]
     Dosage: UNK
     Route: 064
  17. NAPROXEN [Concomitant]
     Dosage: UNK
     Route: 064
  18. TRAZODONE [Concomitant]
     Dosage: UNK
     Route: 064
  19. BUPROPION [Concomitant]
     Dosage: UNK
     Route: 064
  20. ALPRAZOLAM [Concomitant]
     Dosage: UNK
     Route: 064
  21. LOW-OGESTREL [Concomitant]
     Dosage: UNK
     Route: 064
  22. TRIAMCINOLONE [Concomitant]
     Dosage: UNK
     Route: 064
  23. BELLADONNA AND PHENOBARBITONE [Concomitant]
     Dosage: UNK
     Route: 064
  24. ORTHO-NOVUM [Concomitant]
     Dosage: UNK
     Route: 064
  25. RANITIDINE [Concomitant]
     Dosage: UNK
     Route: 064
  26. LORAZEPAM [Concomitant]
     Dosage: UNK
     Route: 064
  27. ACETAMINOPHEN W/CODEINE [Concomitant]
     Dosage: UNK
     Route: 064
  28. FLUOCINONIDE [Concomitant]
     Dosage: UNK
     Route: 064

REACTIONS (10)
  - Foetal exposure during pregnancy [Unknown]
  - Ventricular hypoplasia [Unknown]
  - Congenital tricuspid valve atresia [Unknown]
  - Ventricular septal defect [Unknown]
  - Congenital pulmonary valve disorder [Unknown]
  - Pulmonary artery stenosis congenital [Unknown]
  - Pulmonary hypertension [Unknown]
  - Atrial septal defect [Unknown]
  - Patent ductus arteriosus [Unknown]
  - Congenital anomaly [Unknown]
